FAERS Safety Report 20085444 (Version 1)
Quarter: 2021Q4

REPORT INFORMATION
  Report Type: Spontaneous
  Country: US (occurrence: None)
  Receive Date: 20211117
  Receipt Date: 20211117
  Transmission Date: 20220303
  Serious: Yes (Hospitalization)
  Sender: FDA-Public Use
  Company Number: None

PATIENT
  Age: 62 Year
  Sex: Male

DRUGS (1)
  1. ENBREL [Suspect]
     Active Substance: ETANERCEPT
     Indication: Psoriatic arthropathy
     Dates: start: 20210831

REACTIONS (5)
  - Dizziness [None]
  - Psoriasis [None]
  - Balance disorder [None]
  - Fall [None]
  - Head injury [None]

NARRATIVE: CASE EVENT DATE: 20211023
